FAERS Safety Report 13340664 (Version 1)
Quarter: 2017Q1

REPORT INFORMATION
  Report Type: Spontaneous
  Country: SE (occurrence: SE)
  Receive Date: 20170316
  Receipt Date: 20170316
  Transmission Date: 20170428
  Serious: Yes (Hospitalization)
  Sender: FDA-Public Use
  Company Number: SE-AMGEN-SWESP2017036563

PATIENT
  Age: 73 Year
  Sex: Female

DRUGS (7)
  1. ZOPIKLON MYLAN [Concomitant]
     Dosage: UNK
  2. TRIOBE [Concomitant]
  3. IMOVANE [Concomitant]
     Active Substance: ZOPICLONE
     Dosage: UNK
  4. PREDNISOLON ALTERNOVA [Concomitant]
     Active Substance: PREDNISOLONE
     Dosage: UNK
  5. PROLIA [Suspect]
     Active Substance: DENOSUMAB
     Indication: OSTEOPOROSIS
     Dosage: 60 MG, Q6MO
     Route: 058
     Dates: start: 20141013, end: 20150521
  6. KALEORID [Concomitant]
     Active Substance: POTASSIUM CHLORIDE
     Dosage: UNK
  7. KALCIPOS-D [Concomitant]
     Active Substance: CALCIUM CARBONATE\CHOLECALCIFEROL
     Dosage: UNK

REACTIONS (1)
  - Pathological fracture [Unknown]

NARRATIVE: CASE EVENT DATE: 20150513
